FAERS Safety Report 8142908-X (Version None)
Quarter: 2012Q1

REPORT INFORMATION
  Report Type: 
  Country: None (occurrence: None)
  Receive Date: 20120217
  Receipt Date: 20120207
  Transmission Date: 20120608
  Serious: Yes (Hospitalization, Other)
  Sender: FDA-Public Use
  Company Number: US-BIOGENIDEC-2010BI040287

PATIENT
  Age: 42 Year
  Sex: Female
  Weight: 77 kg

DRUGS (8)
  1. AVONEX [Suspect]
     Route: 030
     Dates: start: 20050101
  2. BETASERON [Concomitant]
     Indication: MULTIPLE SCLEROSIS
     Dates: start: 20020101
  3. DITROPAN XL [Concomitant]
     Indication: URINARY INCONTINENCE
  4. AVONEX [Suspect]
     Route: 030
     Dates: start: 20020101, end: 20040101
  5. AVONEX [Suspect]
     Route: 030
     Dates: start: 20070101, end: 20111201
  6. AVONEX [Suspect]
     Indication: MULTIPLE SCLEROSIS
     Route: 030
     Dates: start: 19980101, end: 20020101
  7. COPAXONE [Concomitant]
     Indication: MULTIPLE SCLEROSIS
     Dates: start: 20020101
  8. GLUCOPHAGE [Concomitant]
     Indication: DIABETES MELLITUS

REACTIONS (39)
  - URINARY BLADDER POLYP [None]
  - RENAL FAILURE [None]
  - BLOOD PRESSURE SYSTOLIC DECREASED [None]
  - FLUID RETENTION [None]
  - PULMONARY HYPERTENSION [None]
  - URETERIC RUPTURE [None]
  - SYNCOPE [None]
  - MITRAL VALVE STENOSIS [None]
  - CYSTITIS EROSIVE [None]
  - PAIN IN EXTREMITY [None]
  - OESOPHAGEAL FISTULA [None]
  - TRIGEMINAL NEURALGIA [None]
  - NASOPHARYNGITIS [None]
  - URINARY TRACT INFECTION [None]
  - INFLUENZA LIKE ILLNESS [None]
  - DEHYDRATION [None]
  - TRICUSPID VALVE INCOMPETENCE [None]
  - FALL [None]
  - MULTIPLE FRACTURES [None]
  - MEDICAL DEVICE COMPLICATION [None]
  - INSOMNIA [None]
  - BENIGN NEOPLASM OF BLADDER [None]
  - CALCULUS BLADDER [None]
  - KIDNEY INFECTION [None]
  - NEPHROLITHIASIS [None]
  - URINARY INCONTINENCE [None]
  - PNEUMONIA BACTERIAL [None]
  - UPPER RESPIRATORY TRACT INFECTION [None]
  - SECONDARY PROGRESSIVE MULTIPLE SCLEROSIS [None]
  - APHAGIA [None]
  - GASTRIC BYPASS [None]
  - MULTIPLE SCLEROSIS RELAPSE [None]
  - OXYGEN SATURATION DECREASED [None]
  - BLOOD GLUCOSE INCREASED [None]
  - CONVULSION [None]
  - FOOT FRACTURE [None]
  - HYDRONEPHROSIS [None]
  - COUGH [None]
  - URINARY RETENTION [None]
